FAERS Safety Report 16099606 (Version 2)
Quarter: 2019Q1

REPORT INFORMATION
  Report Type: Other
  Country: AT (occurrence: AT)
  Receive Date: 20190321
  Receipt Date: 20190329
  Transmission Date: 20190418
  Serious: Yes (Hospitalization)
  Sender: FDA-Public Use
  Company Number: AT-CELLTRION INC.-2018AT022021

PATIENT

DRUGS (24)
  1. NAVELBINE [Suspect]
     Active Substance: VINORELBINE TARTRATE
     Indication: HER-2 POSITIVE BREAST CANCER
     Dosage: 50 MG (MOST RECENT DOSE PRIOR TO THE EVENT PERIPHERAL NEUROPATHY IN THE FINGERS: 10/DEC/2018 )/ MOST
     Route: 048
     Dates: start: 20180719, end: 20181130
  2. DUROTIV [Concomitant]
     Active Substance: ESOMEPRAZOLE
     Indication: DYSPEPSIA
     Dosage: UNK
     Route: 065
     Dates: start: 20180819
  3. DUROTIV [Concomitant]
     Active Substance: ESOMEPRAZOLE
     Dosage: UNK
  4. ZOFRAN [Concomitant]
     Active Substance: ONDANSETRON HYDROCHLORIDE
     Dosage: UNK
     Route: 065
     Dates: start: 20180920
  5. NOVALGIN [Concomitant]
     Dosage: UNK
     Route: 065
     Dates: start: 20180727
  6. XGEVA [Concomitant]
     Active Substance: DENOSUMAB
     Dosage: UNK
     Route: 065
     Dates: start: 20181215
  7. MACROGOL [Concomitant]
     Active Substance: POLYETHYLENE GLYCOLS
     Dosage: UNK, (ONGOING = NOT CHECKED)
     Route: 065
     Dates: start: 20180719
  8. TRASTUZUMAB (UNKNOWN) [Suspect]
     Active Substance: TRASTUZUMAB
     Dosage: 440 MG, EVERY 3 WEEKS
     Route: 042
     Dates: start: 20180809, end: 20180809
  9. PERTUZUMAB. [Suspect]
     Active Substance: PERTUZUMAB
     Dosage: 840 MG, 3 WEEK
     Route: 042
     Dates: start: 20180809
  10. IMODIUM [Concomitant]
     Active Substance: LOPERAMIDE HYDROCHLORIDE
     Indication: DIARRHOEA
     Dosage: UNK, (ONGOING = CHECKED)
     Route: 065
     Dates: start: 20180731
  11. ULSAL [Concomitant]
     Active Substance: RANITIDINE HYDROCHLORIDE
     Dosage: UNK, (ONGOING = CHECKED)
     Route: 065
     Dates: start: 20180809
  12. TRASTUZUMAB (UNKNOWN) [Suspect]
     Active Substance: TRASTUZUMAB
     Indication: HER-2 POSITIVE BREAST CANCER
     Dosage: 440 MG, EVERY 3 WEEKS (MOST RECENT DOSE PRIOR TO THE EVENT: 30/AUG/2018)/ MOST RECENT DOSE PRIOR TO
     Route: 042
     Dates: start: 20180719, end: 20180719
  13. PERTUZUMAB. [Suspect]
     Active Substance: PERTUZUMAB
     Dosage: 420 MG (MOST RECENT DOSE PRIOR TO THE EVENT: 09/AUG/2018 )
     Route: 042
     Dates: start: 20180809
  14. HALDOL [Concomitant]
     Active Substance: HALOPERIDOL
     Indication: NAUSEA
     Dosage: UNK
     Route: 065
     Dates: start: 20180727, end: 20180815
  15. ONDANSAN [Concomitant]
     Dosage: UNK
     Route: 065
     Dates: start: 20180709, end: 20190206
  16. AROMASIN [Suspect]
     Active Substance: EXEMESTANE
     Indication: HER-2 POSITIVE BREAST CANCER
     Dosage: 25 MG, DAILY
     Route: 048
     Dates: start: 20180719
  17. HYDAL [Concomitant]
     Active Substance: HYDROMORPHONE HYDROCHLORIDE
     Indication: DYSPEPSIA
     Dosage: UNK
  18. EUTHYROX [Concomitant]
     Active Substance: LEVOTHYROXINE SODIUM
     Dosage: UNK
     Route: 065
  19. PERTUZUMAB. [Suspect]
     Active Substance: PERTUZUMAB
     Indication: HER-2 POSITIVE BREAST CANCER
     Dosage: 840 MG, EVERY 3 WEEKS, MOST RECENT DOSE PRIOR TO THE EVENT 19/JUL/2018/ MOST RECENT DOSE PRIOR TO TH
     Route: 042
     Dates: start: 20180719
  20. DUROTIV [Concomitant]
     Active Substance: ESOMEPRAZOLE
     Indication: NAUSEA
     Dosage: UNK
     Route: 065
     Dates: start: 20180727
  21. HYDAL [Concomitant]
     Active Substance: HYDROMORPHONE HYDROCHLORIDE
     Indication: NAUSEA
     Dosage: UNK
     Route: 065
     Dates: start: 20180727
  22. HALDOL [Concomitant]
     Active Substance: HALOPERIDOL
     Indication: DYSPEPSIA
     Dosage: UNK
     Route: 065
     Dates: start: 20180731
  23. FENISTIL [Concomitant]
     Active Substance: DIMETHINDENE
     Dosage: UNK, (ONGOING = CHECKED)
     Route: 065
     Dates: start: 20180809
  24. DEXABENE [Concomitant]
     Dosage: UNK, (ONGOING = CHECKED)
     Route: 065
     Dates: start: 20180809

REACTIONS (9)
  - Nausea [Recovered/Resolved]
  - Conjunctivitis [Not Recovered/Not Resolved]
  - Infusion related reaction [Recovered/Resolved]
  - Dyspepsia [Recovered/Resolved]
  - Vertigo [Recovered/Resolved]
  - Muscle spasms [Not Recovered/Not Resolved]
  - Diarrhoea [Not Recovered/Not Resolved]
  - Breast pain [Recovered/Resolved]
  - Neuropathy peripheral [Not Recovered/Not Resolved]

NARRATIVE: CASE EVENT DATE: 20180727
